FAERS Safety Report 8074844-1 (Version None)
Quarter: 2012Q1

REPORT INFORMATION
  Report Type: 
  Country: None (occurrence: None)
  Receive Date: 20120126
  Receipt Date: 20120117
  Transmission Date: 20120608
  Serious: Yes (Congenital Anomaly)
  Sender: FDA-Public Use
  Company Number: NL-ASTRAZENECA-2012SE03397

PATIENT
  Age: 0 Week
  Sex: Male
  Weight: 3 kg

DRUGS (2)
  1. VENLAFAXINE [Concomitant]
     Route: 064
     Dates: start: 20080101
  2. QUETIAPINE [Suspect]
     Indication: DEPRESSION
     Route: 064
     Dates: start: 20080101

REACTIONS (2)
  - HYPOSPADIAS [None]
  - MATERNAL DRUGS AFFECTING FOETUS [None]
